FAERS Safety Report 15978354 (Version 1)
Quarter: 2019Q1

REPORT INFORMATION
  Report Type: Spontaneous
  Country: IN (occurrence: IN)
  Receive Date: 20190219
  Receipt Date: 20190219
  Transmission Date: 20190418
  Serious: Yes (Other)
  Sender: FDA-Public Use
  Company Number: IN-AMGEN-INDSP2019023591

PATIENT
  Age: 38 Year
  Sex: Male

DRUGS (4)
  1. VITAMIN D [Concomitant]
     Active Substance: CHOLECALCIFEROL
     Dosage: 400 IU, QD
  2. XGEVA [Suspect]
     Active Substance: DENOSUMAB
     Dosage: 120 MG, Q4WK
     Route: 058
  3. XGEVA [Suspect]
     Active Substance: DENOSUMAB
     Indication: BONE GIANT CELL TUMOUR
     Dosage: 120 MG, UNK
     Route: 058
  4. CALCIUM [Concomitant]
     Active Substance: CALCIUM
     Dosage: 500 MG, QD

REACTIONS (2)
  - Off label use [Unknown]
  - Metastases to lung [Unknown]
